FAERS Safety Report 8395282-8 (Version None)
Quarter: 2012Q2

REPORT INFORMATION
  Report Type: 
  Country: None (occurrence: None)
  Receive Date: 20120530
  Receipt Date: 20120525
  Transmission Date: 20120825
  Serious: Yes (Hospitalization)
  Sender: FDA-Public Use
  Company Number: PHHY2012JP045458

PATIENT
  Age: 30 Week
  Sex: Male

DRUGS (1)
  1. CERTICAN [Suspect]
     Indication: PROPHYLAXIS AGAINST TRANSPLANT REJECTION
     Route: 048

REACTIONS (3)
  - KIDNEY TRANSPLANT REJECTION [None]
  - ANURIA [None]
  - KIDNEY ENLARGEMENT [None]
